FAERS Safety Report 7968032-4 (Version None)
Quarter: 2011Q4

REPORT INFORMATION
  Report Type: 
  Country: None (occurrence: None)
  Receive Date: 20111209
  Receipt Date: 20111205
  Transmission Date: 20120403
  Serious: Yes (Hospitalization, Other)
  Sender: FDA-Public Use
  Company Number: US-RB-035233-11

PATIENT
  Age: 48 Year
  Sex: Female

DRUGS (2)
  1. SUBOXONE [Suspect]
     Indication: PRODUCT USED FOR UNKNOWN INDICATION
     Dosage: UNKNOWN DOSE
     Route: 065
  2. OXYGEN [Concomitant]

REACTIONS (6)
  - EMPHYSEMA [None]
  - CONDITION AGGRAVATED [None]
  - INFLUENZA [None]
  - LUNG DISORDER [None]
  - IMMUNE SYSTEM DISORDER [None]
  - MALAISE [None]
